FAERS Safety Report 23015581 (Version 1)
Quarter: 2023Q4

REPORT INFORMATION
  Report Type: Spontaneous
  Country: US (occurrence: None)
  Receive Date: 20231002
  Receipt Date: 20231002
  Transmission Date: 20240109
  Serious: Yes (Disabling)
  Sender: FDA-Public Use
  Company Number: None

PATIENT
  Age: 69 Year
  Sex: Female
  Weight: 88.45 kg

DRUGS (13)
  1. REPATHA [Suspect]
     Active Substance: EVOLOCUMAB
     Indication: Blood cholesterol increased
     Route: 058
     Dates: start: 202305, end: 20230917
  2. METHOTREXATE [Concomitant]
     Active Substance: METHOTREXATE
  3. FOLIC ACID [Concomitant]
     Active Substance: FOLIC ACID
  4. SINGULAIR [Concomitant]
     Active Substance: MONTELUKAST SODIUM
  5. NAPROXEN SODIUM [Concomitant]
     Active Substance: NAPROXEN SODIUM
  6. ACETAMINOPHEN\HYDROCODONE [Concomitant]
     Active Substance: ACETAMINOPHEN\HYDROCODONE
  7. FLONASE [Concomitant]
     Active Substance: FLUTICASONE PROPIONATE
  8. AZELASTINE HYDROCHLORIDE [Concomitant]
     Active Substance: AZELASTINE HYDROCHLORIDE
  9. FLOVENT HFA [Concomitant]
     Active Substance: FLUTICASONE PROPIONATE
  10. SYMBICORT [Concomitant]
     Active Substance: BUDESONIDE\FORMOTEROL FUMARATE DIHYDRATE
  11. ALBUTEROL SULF/2 [Concomitant]
  12. CITRACAL CALCIUM SUPPLEMENT + D3/SLOW RELEASE 1200 [Concomitant]
  13. VITAMIN D3-50/50,000 UNIT CAP [Concomitant]

REACTIONS (7)
  - Hyperhidrosis [None]
  - Laryngitis [None]
  - Productive cough [None]
  - Nasopharyngitis [None]
  - Asthma [None]
  - Drug ineffective [None]
  - Therapy cessation [None]

NARRATIVE: CASE EVENT DATE: 20230509
